FAERS Safety Report 17272292 (Version 1)
Quarter: 2020Q1

REPORT INFORMATION
  Report Type: Spontaneous
  Country: US (occurrence: US)
  Receive Date: 20200114
  Receipt Date: 20200114
  Transmission Date: 20200409
  Serious: Yes (Hospitalization)
  Sender: FDA-Public Use
  Company Number: None

PATIENT
  Age: 64 Year
  Sex: Female

DRUGS (16)
  1. LOSARTAN. [Concomitant]
     Active Substance: LOSARTAN
  2. SERTRALINE [Concomitant]
     Active Substance: SERTRALINE HYDROCHLORIDE
  3. TEMOZOLOMIDE. [Suspect]
     Active Substance: TEMOZOLOMIDE
     Indication: CARCINOID SYNDROME
     Dosage: ?          OTHER FREQUENCY:QD DAYS 10-14;?
     Route: 048
     Dates: start: 20180116
  4. CLONIDINE. [Concomitant]
     Active Substance: CLONIDINE
  5. NORTRIPTYLIN [Concomitant]
     Active Substance: NORTRIPTYLINE
  6. RANITIDINE. [Concomitant]
     Active Substance: RANITIDINE
  7. CAPECITABINE. [Suspect]
     Active Substance: CAPECITABINE
     Indication: CARCINOID SYNDROME
     Dosage: ?          OTHER FREQUENCY:BID DAYS 1-14;?
     Route: 048
     Dates: start: 20170906
  8. AMLODIPINE [Concomitant]
     Active Substance: AMLODIPINE BESYLATE
  9. DICLOFENAC [Concomitant]
     Active Substance: DICLOFENAC
  10. VITAMIN C [Concomitant]
     Active Substance: ASCORBIC ACID
  11. LORAZEPAM. [Concomitant]
     Active Substance: LORAZEPAM
  12. METFORMIN [Concomitant]
     Active Substance: METFORMIN HYDROCHLORIDE
  13. METHANAM [Concomitant]
  14. FAMOTIDINE. [Concomitant]
     Active Substance: FAMOTIDINE
  15. MOTOPROL [Concomitant]
  16. LEVOTHYROXIN [Concomitant]
     Active Substance: LEVOTHYROXINE

REACTIONS (2)
  - Therapy cessation [None]
  - Adverse drug reaction [None]

NARRATIVE: CASE EVENT DATE: 20191201
